FAERS Safety Report 17925149 (Version 1)
Quarter: 2020Q2

REPORT INFORMATION
  Report Type: Spontaneous
  Country: US (occurrence: US)
  Receive Date: 20200622
  Receipt Date: 20200622
  Transmission Date: 20200714
  Serious: Yes (Hospitalization, Other)
  Sender: FDA-Public Use
  Company Number: US-JNJFOC-20200615559

PATIENT
  Sex: Female

DRUGS (2)
  1. RISPERDAL [Suspect]
     Active Substance: RISPERIDONE
     Indication: DEPRESSION
     Route: 065
  2. DEPAKOTE [Suspect]
     Active Substance: DIVALPROEX SODIUM
     Indication: DEPRESSION
     Route: 048

REACTIONS (8)
  - Psychiatric symptom [Unknown]
  - Hospitalisation [Recovered/Resolved]
  - Blindness [Unknown]
  - Dysarthria [Unknown]
  - Muscular weakness [Unknown]
  - Urticaria [Unknown]
  - Respiratory disorder [Unknown]
  - Muscle swelling [Unknown]
